FAERS Safety Report 8838821 (Version 1)
Quarter: 2012Q4

REPORT INFORMATION
  Report Type: 
  Country: IT (occurrence: IT)
  Receive Date: 20121014
  Receipt Date: 20121014
  Transmission Date: 20130627
  Serious: Yes (Hospitalization)
  Sender: FDA-Public Use
  Company Number: IT-TEVA-362909ISR

PATIENT
  Age: 84 Year
  Sex: Male

DRUGS (4)
  1. CLARITHROMYCIN [Suspect]
     Indication: BRONCHITIS
     Dosage: 1 Gram Daily;
     Route: 048
     Dates: start: 20120921, end: 20120928
  2. COUMADIN [Suspect]
     Indication: PULMONARY EMBOLISM
     Dosage: 1 Gram Daily;
     Route: 048
     Dates: start: 20120801, end: 20120928
  3. ANDROCUR [Concomitant]
  4. VERAPAMIL CLORIDRATO [Concomitant]

REACTIONS (1)
  - Hypocoagulable state [Recovered/Resolved]
